FAERS Safety Report 4980990-9 (Version None)
Quarter: 2006Q2

REPORT INFORMATION
  Report Type: 
  Country: None (occurrence: None)
  Receive Date: 20060418
  Receipt Date: 20060331
  Transmission Date: 20061013
  Serious: Yes (Hospitalization)
  Sender: FDA-Public Use
  Company Number: US200604000114

PATIENT
  Age: 13 Year
  Sex: Female

DRUGS (8)
  1. CYMBALTA [Suspect]
     Indication: NEUROPATHY
     Dosage: 20 MG, DAILY (1/D)
     Dates: start: 20051201, end: 20060327
  2. DOCUSATE [Concomitant]
  3. PREVACID [Concomitant]
  4. ZONISAMIDE [Concomitant]
  5. DITROPAN XL [Concomitant]
  6. TRAMADOL HCL [Concomitant]
  7. MULTIVITAMIN ^LAPPE^ (VITAMINS NOS) [Concomitant]
  8. FENTANYL [Concomitant]

REACTIONS (2)
  - MEDICAL DEVICE REMOVAL [None]
  - SKIN ULCER [None]
